FAERS Safety Report 19233997 (Version 2)
Quarter: 2021Q2

REPORT INFORMATION
  Report Type: Spontaneous
  Country: BG (occurrence: BG)
  Receive Date: 20210508
  Receipt Date: 20210518
  Transmission Date: 20210717
  Serious: Yes (Other)
  Sender: FDA-Public Use
  Company Number: BG-B.I. PHARMACEUTICALS,INC./RIDGEFIELD-2021-BI-101634

PATIENT
  Age: 64 Year
  Sex: Male

DRUGS (6)
  1. TORES [HYDROCHLOROTHIAZIDE;LOSARTAN POTASSIUM] [Concomitant]
     Indication: HYPERTENSION
     Dosage: STRENGTH: 50/12.5 MG  2 ? 1 TAB.
  2. JENTADUETO [Suspect]
     Active Substance: LINAGLIPTIN\METFORMIN HYDROCHLORIDE
     Indication: DIABETES MELLITUS
  3. ARETA [LERCANIDIPINE HYDROCHLORIDE] [Concomitant]
     Indication: HYPERTENSION
     Dosage: 2 X 10 MG TAB.
  4. ZOXON [CEFTRIAXONE] [Concomitant]
     Indication: HYPERTENSION
     Dosage: 1 MG IN THE EVENING
  5. NEBIVOLOL. [Concomitant]
     Active Substance: NEBIVOLOL
     Indication: HYPERTENSION
     Dosage: 5 MG ? 1 TABL. IN THE MORNING
  6. DIAPREL [Concomitant]
     Active Substance: GLICLAZIDE
     Indication: DIABETES MELLITUS

REACTIONS (2)
  - COVID-19 [Unknown]
  - Nervous system disorder [Unknown]
